FAERS Safety Report 6433548-9 (Version None)
Quarter: 2009Q4

REPORT INFORMATION
  Report Type: 
  Country: None (occurrence: None)
  Receive Date: 20091110
  Receipt Date: 20090930
  Transmission Date: 20100525
  Serious: Yes (Hospitalization, Other)
  Sender: FDA-Public Use
  Company Number: CH-RANBAXY-2009US-20298

PATIENT

DRUGS (9)
  1. MIDAZOLAM HCL [Suspect]
     Indication: DRUG USE FOR UNKNOWN INDICATION
     Dosage: 7.5 MG
     Route: 048
  2. PROPOFOL [Suspect]
     Indication: ANAESTHESIA
     Dosage: 2 MG/KG
     Route: 065
  3. FENTANYL [Suspect]
     Indication: ANAESTHESIA
     Dosage: 0.25 MG, UNK
     Route: 065
  4. SEVOFLURANE [Suspect]
     Indication: ANAESTHESIA
     Route: 065
  5. DICLOFENAC SODIQUE RPG 75MG/3ML SOLUTION INJECTABLE (IM) EN AMPOULE [Suspect]
     Indication: ANAESTHESIA
     Route: 042
  6. ROCURONIUM BROMIDE [Suspect]
     Indication: DRUG USE FOR UNKNOWN INDICATION
     Dosage: 0.9 MG/KG, UNK
     Route: 065
  7. DANTROLENE SODIUM [Suspect]
     Indication: DRUG USE FOR UNKNOWN INDICATION
     Dosage: 800 MG, UNK
     Route: 041
  8. DANTROLENE SODIUM [Suspect]
     Dosage: 10 MG/KG FOR 24 HR
  9. DANTROLENE SODIUM [Suspect]
     Dosage: 10 MG/KG FOR 24 HR

REACTIONS (11)
  - BLOOD CREATINE PHOSPHOKINASE INCREASED [None]
  - BLOOD CREATININE INCREASED [None]
  - BLOOD UREA INCREASED [None]
  - C-REACTIVE PROTEIN INCREASED [None]
  - END-TIDAL CO2 INCREASED [None]
  - HYPERKALAEMIA [None]
  - HYPERTHERMIA MALIGNANT [None]
  - METABOLIC ACIDOSIS [None]
  - PHLEBITIS [None]
  - PYREXIA [None]
  - RHABDOMYOLYSIS [None]
